FAERS Safety Report 23133810 (Version 2)
Quarter: 2024Q1

REPORT INFORMATION
  Report Type: Spontaneous
  Country: DE (occurrence: None)
  Receive Date: 20231101
  Receipt Date: 20240205
  Transmission Date: 20240410
  Serious: Yes (Disabling, Other)
  Sender: FDA-Public Use
  Company Number: DE-ROCHE-3422869

PATIENT
  Age: 68 Year
  Sex: Female
  Weight: 72 kg

DRUGS (2)
  1. VABYSMO [Suspect]
     Active Substance: FARICIMAB\FARICIMAB-SVOA
     Indication: Age-related macular degeneration
     Dosage: 120 MG/ML -} 0.05 ML?FREQUENCY: 4TH INJECTION
     Route: 050
     Dates: start: 20230523, end: 20230905
  2. LUCENTIS [Concomitant]
     Active Substance: RANIBIZUMAB
     Indication: Age-related macular degeneration
     Dosage: 0.05 MG/ML
     Route: 050
     Dates: start: 20211116, end: 20230418

REACTIONS (15)
  - Vitreous detachment [Not Recovered/Not Resolved]
  - Blindness [Not Recovered/Not Resolved]
  - Vitritis [Not Recovered/Not Resolved]
  - Iritis [Not Recovered/Not Resolved]
  - Iridocyclitis [Not Recovered/Not Resolved]
  - Vitritis [Not Recovered/Not Resolved]
  - Eye inflammation [Unknown]
  - Anterior chamber cell [Unknown]
  - Product complaint [Unknown]
  - Chemical poisoning [Unknown]
  - Corneal opacity [Unknown]
  - Anterior chamber flare [Unknown]
  - Product quality issue [Unknown]
  - Off label use [Unknown]
  - Wrong technique in device usage process [Unknown]

NARRATIVE: CASE EVENT DATE: 20230907
